FAERS Safety Report 9280183 (Version 1)
Quarter: 2012Q4

REPORT INFORMATION
  Report Type: Spontaneous
  Country: KR (occurrence: None)
  Receive Date: 20120914
  Receipt Date: 20120914
  Transmission Date: 20130627
  Serious: Yes (Death, Hospitalization)
  Sender: FDA-Public Use
  Company Number: KR-JNJFOC-20110207551

PATIENT
  Age: 65 Year
  Sex: Male
  Weight: 68 kg

DRUGS (33)
  1. DECITABINE (DECITABINE) LYOPHILIZED POWDER [Suspect]
     Route: 042
     Dates: start: 20110207, end: 20110211
  2. DECITABINE (DECITABINE) LYOPHILIZED POWDER [Suspect]
     Route: 042
     Dates: start: 20110314, end: 20110318
  3. DECITABINE (DECITABINE) LYOPHILIZED POWDER [Suspect]
     Route: 042
     Dates: start: 20110411, end: 20110415
  4. DECITABINE (DECITABINE) LYOPHILIZED POWDER [Suspect]
     Route: 042
     Dates: start: 20110516, end: 20110520
  5. DECITABINE (DECITABINE) LYOPHILIZED POWDER [Suspect]
     Route: 042
     Dates: start: 20110613, end: 20110617
  6. DECITABINE (DECITABINE) LYOPHILIZED POWDER [Suspect]
     Route: 042
     Dates: start: 20110718, end: 20110722
  7. DICODE SR (DIHYDROCODEINE) [Concomitant]
  8. ALMAGATE THERAPY [Concomitant]
  9. ALLELOCK (OLOPATADINE HYDROCHLORIDE) [Concomitant]
  10. DAPSONE (DAPSONE) [Concomitant]
  11. CIPROBAY (CIPROFLOXACIN HYDROCHLORIDE) (CIPROFLOXACIN) [Concomitant]
  12. ZOVIRAX (ACICLOVIR) [Concomitant]
  13. SPORANOX (ITRACONAZOLE) [Concomitant]
  14. ASPIRIN (ACETYLSALICYLIC ACID) [Concomitant]
  15. LIPITOR (ATORVASTATIN CALCIUM) [Concomitant]
  16. TRITACE (RAMIPRIL) [Concomitant]
  17. NEBILET (NEBIVOLOL) [Concomitant]
  18. METHYLON (METHYLPREDNISOLONE) [Concomitant]
  19. CIPRO (CIPROFLOXACIN) [Concomitant]
  20. PARIET (RABEPRAZOLE SODIUM) [Concomitant]
  21. CEFTRIAXONE (CEFTRIAXONE) [Concomitant]
  22. FLASINYL (METRONIDAZOLE) [Concomitant]
  23. TRANEXAMIC ACID (TRANEXAMIC ACID) [Concomitant]
  24. PROTON PUMP INHIBITOR (PROTON PUMP INHIBITORS) [Concomitant]
  25. ANTIDIABETIC (DRUG USED IN DIABETES) [Concomitant]
  26. UNKNOWN MEDICAL (ALL OTHER THERAPEUTIC PRODUCTS) [Concomitant]
  27. TAZOBACTAM (TAZOBACTAM) [Concomitant]
  28. JURNISTA (OROS HYDROMORPHONE HCL) [Concomitant]
  29. ULTRACET (TRAMADOL/APAP) [Concomitant]
  30. DOBUTAMINE HYDROCHLORIDE (DOBUTAMINE HYDROCHLORIDE) [Concomitant]
  31. DOPAMINE (DOPAMINE) [Concomitant]
  32. LASIX (FUROSEMIDE) [Concomitant]
  33. FURIX (FUROSEMIDE) [Concomitant]

REACTIONS (10)
  - Diarrhoea [None]
  - Hypophagia [None]
  - Dyspnoea [None]
  - Hypoglycaemia [None]
  - Cardiac failure [None]
  - Stress cardiomyopathy [None]
  - Febrile neutropenia [None]
  - Myocardial infarction [None]
  - Acute myeloid leukaemia [None]
  - Azotaemia [None]
